FAERS Safety Report 13928100 (Version 1)
Quarter: 2017Q3

REPORT INFORMATION
  Report Type: Spontaneous
  Country: CA (occurrence: CA)
  Receive Date: 20170901
  Receipt Date: 20170901
  Transmission Date: 20171127
  Serious: Yes (Hospitalization)
  Sender: FDA-Public Use
  Company Number: CA-PFIZER INC-2017373182

PATIENT
  Age: 61 Year
  Sex: Female

DRUGS (3)
  1. SULFASALAZINE. [Suspect]
     Active Substance: SULFASALAZINE
     Indication: RHEUMATOID ARTHRITIS
     Dosage: 1 G, 2X/DAY
     Dates: start: 201605, end: 201606
  2. ARAVA [Concomitant]
     Active Substance: LEFLUNOMIDE
     Dosage: 20 MG, DAILY
     Dates: start: 201205, end: 201610
  3. PLAQUENIL [Concomitant]
     Active Substance: HYDROXYCHLOROQUINE SULFATE
     Indication: RHEUMATOID ARTHRITIS
     Dosage: 200 MG, 2X/DAY
     Dates: start: 201009

REACTIONS (7)
  - Diarrhoea [Unknown]
  - Drug intolerance [Unknown]
  - Dehydration [Unknown]
  - Syncope [Unknown]
  - Pulmonary thrombosis [Unknown]
  - Nausea [Unknown]
  - Drug hypersensitivity [Unknown]
